FAERS Safety Report 8662164 (Version 2)
Quarter: 2013Q4

REPORT INFORMATION
  Report Type: Report from Study
  Country: CA (occurrence: CA)
  Receive Date: 20120712
  Receipt Date: 20131113
  Transmission Date: 20140711
  Serious: Yes (Other)
  Sender: FDA-Public Use
  Company Number: CA-ROCHE-1085777

PATIENT
  Age: 62 Year
  Sex: Female
  Weight: 65 kg

DRUGS (5)
  1. TOCILIZUMAB [Suspect]
     Indication: RHEUMATOID ARTHRITIS
     Route: 042
     Dates: start: 20120306, end: 20130211
  2. TOCILIZUMAB [Suspect]
     Route: 042
     Dates: start: 20120403
  3. PLAQUENIL [Concomitant]
  4. LEFLUNOMIDE [Concomitant]
  5. NORVASC [Concomitant]

REACTIONS (1)
  - Knee operation [Recovered/Resolved]
